FAERS Safety Report 6407776-2 (Version None)
Quarter: 2009Q4

REPORT INFORMATION
  Report Type: 
  Country: None (occurrence: None)
  Receive Date: 20091020
  Receipt Date: 20090928
  Transmission Date: 20100525
  Serious: No
  Sender: FDA-Public Use
  Company Number: US-BAUSCH-2009BL004889

PATIENT
  Age: 78 Year
  Sex: Female

DRUGS (5)
  1. TOBRAMYCIN AND DEXAMETHASONE OPHTHALMIC SUSPENSION USP 0.3%/0.1% [Suspect]
     Indication: PROPHYLAXIS
     Route: 047
     Dates: start: 20090908
  2. SYMBICORT [Concomitant]
     Indication: BRONCHITIS
  3. PREVACID [Concomitant]
  4. LIPITOR [Concomitant]
     Indication: BLOOD CHOLESTEROL INCREASED
  5. ASPIRIN [Concomitant]
     Indication: PROPHYLAXIS

REACTIONS (1)
  - MUSCLE SPASMS [None]
